FAERS Safety Report 6399710-9 (Version None)
Quarter: 2009Q4

REPORT INFORMATION
  Report Type: 
  Country: None (occurrence: None)
  Receive Date: 20091014
  Receipt Date: 20091005
  Transmission Date: 20100525
  Serious: Yes (Death, Hospitalization)
  Sender: FDA-Public Use
  Company Number: KR-ROCHE-661401

PATIENT
  Age: 71 Year
  Sex: Male

DRUGS (1)
  1. TAMIFLU [Suspect]
     Dosage: NAME: OSELTAMIVIR PHOSPHATE
     Route: 065
     Dates: start: 20090916

REACTIONS (1)
  - PNEUMONIA [None]
